FAERS Safety Report 8004885-1 (Version None)
Quarter: 2011Q4

REPORT INFORMATION
  Report Type: 
  Country: None (occurrence: None)
  Receive Date: 20111223
  Receipt Date: 20111223
  Transmission Date: 20120403
  Serious: Yes (Life-Threatening)
  Sender: FDA-Public Use
  Company Number: None

PATIENT
  Age: 70 Year
  Sex: Female
  Weight: 97.068 kg

DRUGS (1)
  1. ALISKIREN [Suspect]
     Indication: ATRIAL FIBRILLATION
     Dosage: 1 PILL
     Route: 002
     Dates: start: 20111220, end: 20111220

REACTIONS (8)
  - MALAISE [None]
  - PALPITATIONS [None]
  - BLOOD PRESSURE INCREASED [None]
  - BLOOD PRESSURE SYSTOLIC ABNORMAL [None]
  - THIRST [None]
  - SYNCOPE [None]
  - ATRIAL FIBRILLATION [None]
  - DEHYDRATION [None]
